FAERS Safety Report 5069969-9 (Version None)
Quarter: 2006Q3

REPORT INFORMATION
  Report Type: 
  Country: None (occurrence: None)
  Receive Date: 20060731
  Receipt Date: 20060720
  Transmission Date: 20061208
  Serious: Yes (Hospitalization, Other)
  Sender: FDA-Public Use
  Company Number: HQWYE202520JUL06

PATIENT
  Age: 85 Year
  Sex: Female

DRUGS (10)
  1. CORDARONE [Suspect]
     Dosage: 200 MG 1X PER 1 DAY, ORAL
     Route: 048
  2. EFFERALGAN CODEINE (PARACETAMOL/CODEINE PHOSPHATE, ) [Suspect]
     Dosage: 530 MG TABLET, ORAL
     Route: 048
     Dates: end: 20060606
  3. PREVISCAN (FLUINDIONE, ) [Suspect]
     Dosage: 10 MG 1X PER 1 DAY, ORAL
     Route: 048
     Dates: end: 20060606
  4. REMINYL (GALANTAMINE) [Concomitant]
  5. SEROPLEX (ESCITALOPRAM) [Concomitant]
  6. THEOSTAT (THEOPHYLLINE) [Concomitant]
  7. IMOVANE (ZOPICLONE) [Concomitant]
  8. PERINDOPRIL ERBUMINE [Concomitant]
  9. ATARAX [Concomitant]
  10. BUMETANIDE [Concomitant]

REACTIONS (5)
  - ANAEMIA [None]
  - DIVERTICULUM INTESTINAL HAEMORRHAGIC [None]
  - DRUG INTERACTION [None]
  - INTERNATIONAL NORMALISED RATIO INCREASED [None]
  - MELAENA [None]
